FAERS Safety Report 12178997 (Version 4)
Quarter: 2016Q2

REPORT INFORMATION
  Report Type: Report from Study
  Country: LB (occurrence: LB)
  Receive Date: 20160315
  Receipt Date: 20160620
  Transmission Date: 20160815
  Serious: Yes (Other)
  Sender: FDA-Public Use
  Company Number: PHHY2012LB048424

PATIENT
  Age: 61 Year
  Sex: Female

DRUGS (8)
  1. ELTROXIN ^GLAXO^ [Concomitant]
     Indication: PRODUCT USED FOR UNKNOWN INDICATION
     Dosage: 1 DF, QD
     Route: 048
     Dates: start: 1994
  2. GLIVEC [Suspect]
     Active Substance: IMATINIB MESYLATE
     Indication: CHRONIC MYELOID LEUKAEMIA
     Dosage: 400 MG, QD
     Route: 048
     Dates: start: 2008
  3. BLOKIUM [Concomitant]
     Indication: PRODUCT USED FOR UNKNOWN INDICATION
     Dosage: 1 DF, QD
     Route: 048
     Dates: start: 2006
  4. VASCOR [Concomitant]
     Active Substance: BEPRIDIL HYDROCHLORIDE
     Indication: PRODUCT USED FOR UNKNOWN INDICATION
     Dosage: 1 DF, QD
     Route: 048
     Dates: start: 2007
  5. MAGNE B6 [Concomitant]
     Active Substance: MAGNESIUM\PYRIDOXINE
     Indication: PRODUCT USED FOR UNKNOWN INDICATION
     Dosage: 1 DF, Q12H
     Route: 048
     Dates: start: 2008
  6. CAPOZID [Concomitant]
     Indication: PRODUCT USED FOR UNKNOWN INDICATION
     Dosage: 1 DF, QD
     Route: 048
     Dates: start: 2007
  7. OROCAL [Concomitant]
     Active Substance: CALCIUM CARBONATE
     Indication: PRODUCT USED FOR UNKNOWN INDICATION
     Dosage: 1 DF, QD
     Route: 048
     Dates: start: 2008
  8. MAGNE B6 [Concomitant]
     Active Substance: MAGNESIUM\PYRIDOXINE
     Dosage: 1 DF, QD
     Route: 048

REACTIONS (36)
  - Conjunctival haemorrhage [Recovering/Resolving]
  - Cardiac disorder [Not Recovered/Not Resolved]
  - Bone pain [Not Recovered/Not Resolved]
  - Bone pain [Recovered/Resolved]
  - Left ventricular hypertrophy [Unknown]
  - Stenosis [Unknown]
  - Nausea [Recovered/Resolved]
  - Cough [Unknown]
  - Musculoskeletal pain [Not Recovered/Not Resolved]
  - Gastroenteritis [Unknown]
  - Aortic stenosis [Unknown]
  - Sputum discoloured [Unknown]
  - Mitral valve incompetence [Unknown]
  - Muscle spasms [Not Recovered/Not Resolved]
  - Left atrial dilatation [Unknown]
  - Pulmonary arterial pressure abnormal [Unknown]
  - Skin discolouration [Not Recovered/Not Resolved]
  - Musculoskeletal chest pain [Unknown]
  - Chest pain [Recovering/Resolving]
  - Arthralgia [Not Recovered/Not Resolved]
  - Erythema [Recovered/Resolved]
  - Oedema peripheral [Not Recovered/Not Resolved]
  - Diarrhoea [Recovering/Resolving]
  - Aortic valve incompetence [Unknown]
  - Pallor [Recovered/Resolved]
  - Aortic calcification [Unknown]
  - Anxiety [Recovering/Resolving]
  - Pyrexia [Recovered/Resolved]
  - Abdominal pain upper [Recovering/Resolving]
  - Hypertension [Recovering/Resolving]
  - Influenza [Recovered/Resolved]
  - Weight increased [Not Recovered/Not Resolved]
  - Myalgia [Recovering/Resolving]
  - Headache [Recovering/Resolving]
  - Dizziness [Recovering/Resolving]
  - Fatigue [Recovered/Resolved]

NARRATIVE: CASE EVENT DATE: 20120522
